FAERS Safety Report 13178381 (Version 1)
Quarter: 2017Q1

REPORT INFORMATION
  Report Type: Spontaneous
  Country: US (occurrence: US)
  Receive Date: 20170201
  Receipt Date: 20170201
  Transmission Date: 20170428
  Serious: Yes (Hospitalization)
  Sender: FDA-Public Use
  Company Number: None

PATIENT
  Age: 53 Year
  Sex: Female

DRUGS (1)
  1. OPSUMIT [Suspect]
     Active Substance: MACITENTAN
     Indication: PULMONARY EMBOLISM
     Route: 048
     Dates: start: 20160415, end: 20170104

REACTIONS (4)
  - Oedema peripheral [None]
  - Fluid overload [None]
  - Secretion discharge [None]
  - Dyspnoea [None]

NARRATIVE: CASE EVENT DATE: 20170116
